FAERS Safety Report 21761456 (Version 1)
Quarter: 2022Q4

REPORT INFORMATION
  Report Type: Other
  Country: JP (occurrence: JP)
  Receive Date: 20221221
  Receipt Date: 20221221
  Transmission Date: 20230112
  Serious: Yes (Hospitalization, Disabling, Other)
  Sender: FDA-Public Use
  Company Number: JP-ROCHE-3245994

PATIENT
  Age: 46 Year

DRUGS (18)
  1. ATEZOLIZUMAB [Suspect]
     Active Substance: ATEZOLIZUMAB
     Indication: Non-small cell lung cancer
     Dosage: 1200MG,ONCE IN1DAY
     Route: 041
     Dates: start: 20200528, end: 20200528
  2. BEVACIZUMAB [Suspect]
     Active Substance: BEVACIZUMAB
     Indication: Non-small cell lung cancer
     Route: 041
     Dates: start: 20200528, end: 20200528
  3. CARBOPLATIN [Suspect]
     Active Substance: CARBOPLATIN
     Indication: Non-small cell lung cancer
     Dosage: 877.2MG,ONCE IN1DAY
     Route: 041
     Dates: start: 20200528, end: 20200528
  4. PACLITAXEL [Suspect]
     Active Substance: PACLITAXEL
     Indication: Non-small cell lung cancer
     Dosage: 329.53MG,ONCE IN1DAY
     Route: 041
     Dates: start: 20200528, end: 20200528
  5. CALONAL [Suspect]
     Active Substance: ACETAMINOPHEN
     Indication: Back pain
     Dosage: 1500MG,ONCE IN1DAY
     Route: 048
     Dates: start: 20200529, end: 20200604
  6. AMLODIPINE [Concomitant]
     Active Substance: AMLODIPINE BESYLATE
     Indication: Hypertension
     Dosage: DOSE INTERVAL UNCERTAINTY
     Route: 048
  7. OLMESARTAN [Concomitant]
     Active Substance: OLMESARTAN
     Indication: Hypertension
     Dosage: DOSE INTERVAL UNCERTAINTY
     Route: 048
  8. LANSOPRAZOLE [Concomitant]
     Active Substance: LANSOPRAZOLE
     Indication: Prophylaxis
     Dosage: DOSE INTERVAL UNCERTAINTY
     Route: 048
  9. CALCIUM CARBONATE\CHOLECALCIFEROL\MAGNESIUM CARBONATE [Concomitant]
     Active Substance: CALCIUM CARBONATE\CHOLECALCIFEROL\MAGNESIUM CARBONATE
     Indication: Prophylaxis
     Dosage: DOSE INTERVAL UNCERTAINTY
     Route: 048
  10. DEXTROMETHORPHAN HYDROBROMIDE [Concomitant]
     Active Substance: DEXTROMETHORPHAN HYDROBROMIDE
     Indication: Non-small cell lung cancer
     Route: 048
  11. HYDROMORPHONE HYDROCHLORIDE [Concomitant]
     Active Substance: HYDROMORPHONE HYDROCHLORIDE
     Indication: Back pain
     Dosage: DOSE INTERVAL UNCERTAINTY
     Route: 048
  12. EMEND [Concomitant]
     Active Substance: APREPITANT
     Indication: Prophylaxis
     Route: 048
     Dates: start: 20200529, end: 20200530
  13. DECADRON [Concomitant]
     Active Substance: DEXAMETHASONE
     Indication: Prophylaxis
     Route: 048
     Dates: start: 20200529, end: 20200531
  14. SYMPROIC [Concomitant]
     Active Substance: NALDEMEDINE
     Indication: Prophylaxis
     Route: 048
     Dates: start: 20200529
  15. LOXOPROFEN [Concomitant]
     Active Substance: LOXOPROFEN
     Indication: Back pain
     Route: 048
     Dates: start: 20200529
  16. METOCLOPRAMIDE [Concomitant]
     Active Substance: METOCLOPRAMIDE
     Indication: Prophylaxis
     Dosage: AT THE HICCUP
     Route: 048
     Dates: start: 20200529
  17. MAGNESIUM OXIDE [Concomitant]
     Active Substance: MAGNESIUM OXIDE
     Indication: Prophylaxis
     Dosage: AT THE OBSTIPATION
     Route: 048
     Dates: start: 20200529
  18. SENNA [Concomitant]
     Active Substance: SENNA LEAF\SENNOSIDES\SENNOSIDES A AND B
     Indication: Prophylaxis
     Dosage: AT THE OBSTIPATION
     Route: 048
     Dates: start: 20200529

REACTIONS (35)
  - Drug-induced liver injury [Recovering/Resolving]
  - Pyrexia [Recovered/Resolved]
  - Meningitis [Recovered/Resolved with Sequelae]
  - Bladder disorder [Unknown]
  - Anorectal disorder [Unknown]
  - Lymphocyte count decreased [Unknown]
  - Peripheral motor neuropathy [Unknown]
  - Oral candidiasis [Unknown]
  - Peripheral sensory neuropathy [Unknown]
  - Constipation [Unknown]
  - Interstitial lung disease [Unknown]
  - White blood cell count decreased [Unknown]
  - Hyponatraemia [Unknown]
  - Disseminated intravascular coagulation [Unknown]
  - Cytokine release syndrome [Unknown]
  - Hypoxia [Unknown]
  - Clostridium difficile infection [Unknown]
  - Nausea [Unknown]
  - Vomiting [Unknown]
  - Decreased appetite [Unknown]
  - Skin exfoliation [Unknown]
  - Rash [Unknown]
  - Neutrophil count decreased [Unknown]
  - Platelet count decreased [Unknown]
  - Anaemia [Unknown]
  - Dysphagia [Unknown]
  - Oropharyngeal pain [Unknown]
  - Malaise [Unknown]
  - Cough [Unknown]
  - Hypotension [Unknown]
  - Hypoalbuminaemia [Unknown]
  - Stomatitis [Unknown]
  - Sinus tachycardia [Unknown]
  - Dyslalia [Unknown]
  - Proteinuria [Unknown]

NARRATIVE: CASE EVENT DATE: 20200529
